FAERS Safety Report 9500402 (Version 1)
Quarter: 2013Q3

REPORT INFORMATION
  Report Type: Spontaneous
  Country: US (occurrence: None)
  Receive Date: 20130904
  Receipt Date: 20130904
  Transmission Date: 20140515
  Serious: No
  Sender: FDA-Public Use
  Company Number: None

PATIENT
  Age: 5 Year
  Sex: Female
  Weight: 20 kg

DRUGS (1)
  1. SINGULAIR [Suspect]
     Indication: ASTHMA
     Dosage: 1 TABLET AT BEDTIME TAKEN BY MOUTH
     Route: 048

REACTIONS (4)
  - Mood swings [None]
  - Fatigue [None]
  - Crying [None]
  - Screaming [None]
